FAERS Safety Report 25466068 (Version 1)
Quarter: 2025Q2

REPORT INFORMATION
  Report Type: Spontaneous
  Country: US (occurrence: US)
  Receive Date: 20250623
  Receipt Date: 20250623
  Transmission Date: 20250717
  Serious: No
  Sender: TEVA
  Company Number: US-TEVA-VS-3342899

PATIENT
  Age: 78 Year

DRUGS (1)
  1. CYCLOBENZAPRINE [Suspect]
     Active Substance: CYCLOBENZAPRINE
     Indication: Headache
     Route: 048
     Dates: start: 202411

REACTIONS (1)
  - Paraesthesia [Not Recovered/Not Resolved]
